FAERS Safety Report 13071938 (Version 1)
Quarter: 2016Q4

REPORT INFORMATION
  Report Type: Spontaneous
  Country: US (occurrence: US)
  Receive Date: 20161228
  Receipt Date: 20161228
  Transmission Date: 20170207
  Serious: Yes (Disabling)
  Sender: FDA-Public Use
  Company Number: None

PATIENT
  Age: 53 Year
  Sex: Female
  Weight: 96.7 kg

DRUGS (1)
  1. CIPRO [Suspect]
     Active Substance: CIPROFLOXACIN HYDROCHLORIDE
     Indication: URINARY TRACT INFECTION
     Dosage: ?          QUANTITY:2 TABLET(S);?
     Route: 048
     Dates: end: 20161031

REACTIONS (11)
  - Depression [None]
  - Pain in extremity [None]
  - Inflammation [None]
  - Arthralgia [None]
  - Memory impairment [None]
  - Bone pain [None]
  - Musculoskeletal pain [None]
  - Burning sensation [None]
  - Hypoaesthesia [None]
  - Swelling [None]
  - Joint crepitation [None]

NARRATIVE: CASE EVENT DATE: 20161030
